FAERS Safety Report 20236797 (Version 1)
Quarter: 2021Q4

REPORT INFORMATION
  Report Type: Spontaneous
  Country: DE (occurrence: DE)
  Receive Date: 20211228
  Receipt Date: 20211228
  Transmission Date: 20220304
  Serious: Yes (Congenital Anomaly, Other)
  Sender: FDA-Public Use
  Company Number: DE-EMBRYOTOX-202012231

PATIENT
  Age: 1 Day
  Sex: Female
  Weight: 1.91 kg

DRUGS (6)
  1. FLUTICASONE FUROATE\VILANTEROL TRIFENATATE [Suspect]
     Active Substance: FLUTICASONE FUROATE\VILANTEROL TRIFENATATE
     Indication: Asthma
     Dosage: UNK (92 [?G/D ] / 22 [?G/D ])
     Route: 064
  2. BETAMETHASONE [Suspect]
     Active Substance: BETAMETHASONE
     Indication: Maternal therapy to enhance foetal lung maturity
     Dosage: 12 MG, QD (12 [MG/D ])
     Route: 064
     Dates: start: 20210502, end: 20210503
  3. ALBUTEROL [Concomitant]
     Active Substance: ALBUTEROL
     Indication: Asthma
     Dosage: UNK (IF REQUIRED)
     Route: 064
     Dates: start: 20200918, end: 20201215
  4. NIFEDIPINE [Concomitant]
     Active Substance: NIFEDIPINE
     Indication: Premature labour
     Dosage: UNK
     Route: 064
     Dates: start: 20210504, end: 20210509
  5. ATOSIBAN [Concomitant]
     Active Substance: ATOSIBAN
     Indication: Premature labour
     Dosage: UNK
     Route: 064
     Dates: start: 20210502, end: 20210503
  6. EFEROX [Concomitant]
     Active Substance: LEVOTHYROXINE SODIUM
     Indication: Hypothyroidism
     Dosage: UNK
     Route: 064
     Dates: start: 20200918, end: 20210509

REACTIONS (9)
  - Talipes [Unknown]
  - Limb reduction defect [Unknown]
  - Tracheo-oesophageal fistula [Unknown]
  - Patent ductus arteriosus [Recovered/Resolved]
  - Atrial septal defect [Unknown]
  - Limb malformation [Unknown]
  - Oesophageal atresia [Unknown]
  - Congenital knee deformity [Unknown]
  - Foetal exposure during pregnancy [Unknown]

NARRATIVE: CASE EVENT DATE: 20210509
